FAERS Safety Report 5234831-5 (Version None)
Quarter: 2007Q1

REPORT INFORMATION
  Report Type: 
  Country: None (occurrence: None)
  Receive Date: 20070209
  Receipt Date: 20070201
  Transmission Date: 20070707
  Serious: Yes (Other)
  Sender: FDA-Public Use
  Company Number: US-PFIZER INC-2007003797

PATIENT

DRUGS (1)
  1. LIPITOR [Suspect]

REACTIONS (1)
  - NO ADVERSE EFFECT [None]
